FAERS Safety Report 7328523-6 (Version None)
Quarter: 2011Q1

REPORT INFORMATION
  Report Type: 
  Country: None (occurrence: None)
  Receive Date: 20110303
  Receipt Date: 20110222
  Transmission Date: 20110831
  Serious: Yes (Other)
  Sender: FDA-Public Use
  Company Number: BR-ASTRAZENECA-2011SE10151

PATIENT
  Age: 67 Year
  Sex: Male
  Weight: 74 kg

DRUGS (4)
  1. SEROQUEL [Suspect]
     Indication: DEPRESSION
     Route: 048
     Dates: start: 20090801
  2. NEXIUM [Suspect]
     Route: 048
     Dates: start: 20101001
  3. CYMBALTA [Concomitant]
     Indication: DEPRESSION
     Route: 048
     Dates: start: 20060101
  4. NEXIUM [Suspect]
     Indication: GASTRITIS
     Route: 048
     Dates: start: 20070101, end: 20101001

REACTIONS (9)
  - LEUKAEMIA RECURRENT [None]
  - PNEUMONIA [None]
  - FIBROMYALGIA [None]
  - HEADACHE [None]
  - DEPRESSION [None]
  - INTENTIONAL DRUG MISUSE [None]
  - NAUSEA [None]
  - CHRONIC LYMPHOCYTIC LEUKAEMIA [None]
  - DYSPNOEA [None]
